FAERS Safety Report 9738377 (Version 1)
Quarter: 2013Q4

REPORT INFORMATION
  Report Type: Report from Study
  Country: US (occurrence: US)
  Receive Date: 20131208
  Receipt Date: 20131208
  Transmission Date: 20140711
  Serious: Yes (Life-Threatening, Hospitalization)
  Sender: FDA-Public Use
  Company Number: US-ROCHE-1313767

PATIENT
  Age: 75 Year
  Sex: Female
  Weight: 81.72 kg

DRUGS (7)
  1. AVASTIN [Suspect]
     Indication: MACULAR DEGENERATION
     Dosage: 6-8 WEEKS USUALLY
     Route: 050
  2. LUCENTIS [Suspect]
     Indication: MACULAR DEGENERATION
     Dosage: 6-8 WEEKS USUALLY
     Route: 050
  3. ALBUTEROL [Suspect]
     Indication: PRODUCT USED FOR UNKNOWN INDICATION
     Route: 065
  4. ATENOLOL [Concomitant]
     Indication: HYPERTENSION
     Route: 048
  5. LIPITOR [Concomitant]
     Route: 048
  6. FISH OIL [Concomitant]
     Route: 048
  7. BABY ASPIRIN [Concomitant]
     Dosage: DAILY
     Route: 065

REACTIONS (12)
  - Myocardial infarction [Recovered/Resolved]
  - Bronchitis [Recovered/Resolved]
  - Visual impairment [Recovered/Resolved]
  - Atrial fibrillation [Recovered/Resolved]
  - Cataract [Not Recovered/Not Resolved]
  - Cough [Recovered/Resolved]
  - Haemoptysis [Recovered/Resolved]
  - Retinal scar [Not Recovered/Not Resolved]
  - Arthritis [Not Recovered/Not Resolved]
  - Back disorder [Not Recovered/Not Resolved]
  - Meniscus injury [Unknown]
  - Off label use [Unknown]
